FAERS Safety Report 23728133 (Version 2)
Quarter: 2024Q4

REPORT INFORMATION
  Report Type: Spontaneous
  Country: CH (occurrence: CH)
  Receive Date: 20240410
  Receipt Date: 20241218
  Transmission Date: 20250114
  Serious: Yes (Other)
  Sender: MERCK
  Company Number: CH-009507513-2404CHE005515

PATIENT
  Age: 32 Year
  Sex: Female

DRUGS (15)
  1. PEMBROLIZUMAB [Suspect]
     Active Substance: PEMBROLIZUMAB
     Indication: Lung neoplasm malignant
     Dosage: 200 MILLIGRAM, Q3W
     Dates: start: 20220506, end: 20220506
  2. PEMBROLIZUMAB [Suspect]
     Active Substance: PEMBROLIZUMAB
     Indication: Non-small cell lung cancer
     Dosage: 200 MILLIGRAM, Q3W
     Dates: start: 20220527, end: 20220527
  3. PEMBROLIZUMAB [Suspect]
     Active Substance: PEMBROLIZUMAB
     Dosage: 200 MILLIGRAM, Q3W
     Dates: start: 20220616, end: 20220616
  4. PEMBROLIZUMAB [Suspect]
     Active Substance: PEMBROLIZUMAB
     Dosage: 200 MILLIGRAM, Q3W
     Dates: start: 2022, end: 2023
  5. PEMBROLIZUMAB [Suspect]
     Active Substance: PEMBROLIZUMAB
     Dosage: 200 MILLIGRAM, Q3W
     Dates: start: 20230317, end: 20230317
  6. PEMBROLIZUMAB [Suspect]
     Active Substance: PEMBROLIZUMAB
     Dosage: 200 MILLIGRAM, Q3W
     Dates: start: 2023, end: 2023
  7. PEMBROLIZUMAB [Suspect]
     Active Substance: PEMBROLIZUMAB
     Dosage: 200 MILLIGRAM, Q3W
     Dates: start: 20231124, end: 2024
  8. CARBOPLATIN [Suspect]
     Active Substance: CARBOPLATIN
     Indication: Lung neoplasm malignant
     Dosage: UNK
     Dates: start: 20220506, end: 20220506
  9. CARBOPLATIN [Suspect]
     Active Substance: CARBOPLATIN
     Indication: Non-small cell lung cancer
     Dosage: UNK
     Dates: start: 20220527, end: 20220527
  10. CARBOPLATIN [Suspect]
     Active Substance: CARBOPLATIN
     Dosage: UNK
     Dates: start: 20220616, end: 20220616
  11. CARBOPLATIN [Suspect]
     Active Substance: CARBOPLATIN
     Dosage: UNK
     Dates: start: 2022, end: 202207
  12. PEMETREXED [Suspect]
     Active Substance: PEMETREXED
     Indication: Lung neoplasm malignant
     Dosage: Q3W
     Dates: start: 20220506, end: 20220506
  13. PEMETREXED [Suspect]
     Active Substance: PEMETREXED
     Indication: Non-small cell lung cancer
     Dosage: Q3W
     Dates: start: 20220527, end: 20220527
  14. PEMETREXED [Suspect]
     Active Substance: PEMETREXED
     Dosage: Q3W
     Dates: start: 20220616, end: 20220616
  15. PEMETREXED [Suspect]
     Active Substance: PEMETREXED
     Dosage: Q3W
     Dates: start: 2022, end: 202303

REACTIONS (20)
  - Malignant neoplasm progression [Unknown]
  - Pulmonary fibrosis [Unknown]
  - Pathological fracture [Recovering/Resolving]
  - Pulmonary fibrosis [Not Recovered/Not Resolved]
  - Subclavian vein thrombosis [Unknown]
  - Brachiocephalic vein thrombosis [Unknown]
  - Vena cava thrombosis [Unknown]
  - Pericardial effusion [Not Recovered/Not Resolved]
  - Computerised tomogram liver abnormal [Unknown]
  - Respiratory disorder [Unknown]
  - Lung consolidation [Unknown]
  - Thymus disorder [Unknown]
  - Hepatic cyst [Unknown]
  - Chest pain [Recovered/Resolved]
  - Lymphadenopathy [Unknown]
  - Pseudarthrosis [Unknown]
  - Fatigue [Recovering/Resolving]
  - Face oedema [Recovered/Resolved]
  - Oedema peripheral [Recovered/Resolved]
  - Inappropriate schedule of product administration [Unknown]

NARRATIVE: CASE EVENT DATE: 20220616
